FAERS Safety Report 17480324 (Version 1)
Quarter: 2020Q1

REPORT INFORMATION
  Report Type: Spontaneous
  Country: GB (occurrence: GB)
  Receive Date: 20200228
  Receipt Date: 20200228
  Transmission Date: 20200409
  Serious: Yes (Hospitalization)
  Sender: FDA-Public Use
  Company Number: GB-BIOMARINAP-GB-2020-128671

PATIENT
  Age: 3 Year
  Sex: Male

DRUGS (3)
  1. NAGLAZYME [Suspect]
     Active Substance: GALSULFASE
     Dosage: 15 MILLIGRAM, QW
     Route: 042
  2. NAGLAZYME [Suspect]
     Active Substance: GALSULFASE
     Indication: MUCOPOLYSACCHARIDOSIS VI
     Dosage: 10 MILLIGRAM, QW
     Route: 042
  3. AMETOP [TETRACAINE] [Concomitant]
     Active Substance: TETRACAINE
     Indication: PRODUCT USED FOR UNKNOWN INDICATION

REACTIONS (4)
  - Product administration interrupted [Unknown]
  - Catheter site erythema [Recovered/Resolved]
  - Personality change [Not Recovered/Not Resolved]
  - Pyrexia [Recovered/Resolved]

NARRATIVE: CASE EVENT DATE: 20200219
